FAERS Safety Report 5407910-7 (Version None)
Quarter: 2007Q3

REPORT INFORMATION
  Report Type: 
  Country: None (occurrence: None)
  Receive Date: 20070713
  Receipt Date: 20070430
  Transmission Date: 20080115
  Serious: No
  Sender: FDA-Public Use
  Company Number: 2007SP001575

PATIENT
  Age: 85 Year
  Sex: Male
  Weight: 56.6996 kg

DRUGS (3)
  1. LUNESTA [Suspect]
     Indication: INSOMNIA
     Dosage: 2 MG;HS;ORAL
     Route: 048
     Dates: start: 20070427
  2. GLIPIZIDE [Concomitant]
  3. ATORVASTATIN CALCIUM [Concomitant]

REACTIONS (1)
  - BLOOD GLUCOSE INCREASED [None]
